FAERS Safety Report 6267960-8 (Version None)
Quarter: 2009Q3

REPORT INFORMATION
  Report Type: 
  Country: None (occurrence: None)
  Receive Date: 20090713
  Receipt Date: 20090701
  Transmission Date: 20100115
  Serious: Yes (Hospitalization)
  Sender: FDA-Public Use
  Company Number: 236534K09USA

PATIENT
  Age: 53 Year
  Sex: Female

DRUGS (1)
  1. REBIF [Suspect]
     Indication: MULTIPLE SCLEROSIS
     Dosage: 44 MCG, 3 IN 1 WEEKS, SUBCUTANEOUS
     Route: 058
     Dates: start: 20060411

REACTIONS (7)
  - ARTHRALGIA [None]
  - ARTHROPATHY [None]
  - ECONOMIC PROBLEM [None]
  - LIMB DEFORMITY [None]
  - MUSCULAR WEAKNESS [None]
  - PAIN [None]
  - WHEELCHAIR USER [None]
